FAERS Safety Report 9286805 (Version 2)
Quarter: 2013Q2

REPORT INFORMATION
  Report Type: Spontaneous
  Country: US (occurrence: US)
  Receive Date: 20130513
  Receipt Date: 20130521
  Transmission Date: 20140414
  Serious: Yes (Death, Other)
  Sender: FDA-Public Use
  Company Number: US-ALEXION-A201300991

PATIENT
  Age: 54 Year
  Sex: Female

DRUGS (1)
  1. SOLIRIS 300MG [Suspect]
     Indication: HAEMOLYTIC URAEMIC SYNDROME
     Dosage: UNK
     Route: 042
     Dates: start: 20130427

REACTIONS (5)
  - Death [Fatal]
  - Brain oedema [Unknown]
  - Cerebral hypoperfusion [Unknown]
  - Brain herniation [Unknown]
  - Sinusitis [Unknown]
